FAERS Safety Report 10610495 (Version 1)
Quarter: 2014Q4

REPORT INFORMATION
  Report Type: Spontaneous
  Country: CZ (occurrence: None)
  Receive Date: 20141124
  Receipt Date: 20141124
  Transmission Date: 20150529
  Serious: Yes (Hospitalization, Other)
  Sender: FDA-Public Use
  Company Number: CZ-ZYDUS-005517

PATIENT
  Age: 71 Year
  Sex: Female

DRUGS (1)
  1. TELMISARTAN. [Suspect]
     Active Substance: TELMISARTAN
     Indication: HYPERTENSION

REACTIONS (5)
  - Gastrointestinal disorder [None]
  - Enteritis [None]
  - Colitis [None]
  - Gastritis [None]
  - Renal failure [None]
